FAERS Safety Report 8485545 (Version 2)
Quarter: 2013Q2

REPORT INFORMATION
  Report Type: Spontaneous
  Country: CA (occurrence: CA)
  Receive Date: 20120330
  Receipt Date: 20130426
  Transmission Date: 20140414
  Serious: Yes (Other)
  Sender: FDA-Public Use
  Company Number: CA-JNJFOC-20120311835

PATIENT
  Age: 75 Year
  Sex: Male
  Weight: 83 kg

DRUGS (16)
  1. REMICADE [Suspect]
     Indication: COLITIS ULCERATIVE
     Route: 042
     Dates: start: 20120321
  2. REMICADE [Suspect]
     Indication: COLITIS ULCERATIVE
     Route: 042
     Dates: start: 20100628
  3. SOLUCORTEF [Concomitant]
     Indication: PREMEDICATION
     Route: 042
  4. VERAPAMIL [Concomitant]
     Route: 065
  5. CRESTOR [Concomitant]
     Route: 065
  6. FLONASE [Concomitant]
     Route: 065
  7. VITAMIN D [Concomitant]
     Route: 065
  8. ACETYL SALICYLIC ACID [Concomitant]
     Route: 065
  9. HYDROCHLOROTHIAZIDE [Concomitant]
     Route: 065
  10. ZOPICLONE [Concomitant]
     Route: 065
  11. PREDNISONE [Concomitant]
     Route: 065
  12. SALOFALK [Concomitant]
     Route: 065
  13. CITALOPRAM [Concomitant]
     Route: 065
  14. SLOW-K [Concomitant]
     Route: 065
  15. CORTIFOAM [Concomitant]
     Route: 065
  16. TYLENOL 3 [Concomitant]
     Route: 065

REACTIONS (5)
  - Neoplasm [Unknown]
  - Feeling cold [Recovered/Resolved]
  - Chills [Recovered/Resolved]
  - Back pain [Recovered/Resolved]
  - Infusion related reaction [Recovered/Resolved]
